FAERS Safety Report 15890528 (Version 2)
Quarter: 2019Q1

REPORT INFORMATION
  Report Type: Report from Study
  Country: None (occurrence: US)
  Receive Date: 20190130
  Receipt Date: 20190212
  Transmission Date: 20190417
  Serious: Yes (Hospitalization)
  Sender: FDA-Public Use
  Company Number: US-ABBVIE-19K-163-2628867-00

PATIENT
  Age: 49 Year
  Sex: Female
  Weight: 89.89 kg

DRUGS (4)
  1. METOPROLOL. [Concomitant]
     Active Substance: METOPROLOL
     Indication: BLOOD PRESSURE MEASUREMENT
  2. HUMIRA [Suspect]
     Active Substance: ADALIMUMAB
     Indication: RHEUMATOID ARTHRITIS
     Route: 058
     Dates: start: 2011, end: 2013
  3. HUMIRA [Suspect]
     Active Substance: ADALIMUMAB
     Indication: RHEUMATOID ARTHRITIS
     Route: 058
     Dates: start: 20180102, end: 2018
  4. HUMIRA [Suspect]
     Active Substance: ADALIMUMAB
     Route: 058
     Dates: start: 201812

REACTIONS (26)
  - Protein total decreased [Unknown]
  - Swelling face [Recovered/Resolved]
  - Cough [Recovered/Resolved]
  - Dry skin [Unknown]
  - Rheumatoid arthritis [Recovered/Resolved]
  - Speech disorder [Recovered/Resolved]
  - Eczema [Not Recovered/Not Resolved]
  - Rash erythematous [Not Recovered/Not Resolved]
  - Pain in extremity [Recovered/Resolved]
  - Thrombosis [Unknown]
  - Weight decreased [Not Recovered/Not Resolved]
  - Back injury [Recovered/Resolved]
  - Heart rate increased [Recovered/Resolved]
  - Chest pain [Recovered/Resolved]
  - Wrong technique in product usage process [Unknown]
  - Weight increased [Recovered/Resolved]
  - Painful respiration [Recovered/Resolved]
  - Back pain [Recovered/Resolved]
  - Pain [Recovered/Resolved]
  - Device issue [Unknown]
  - Infection [Recovering/Resolving]
  - Pulmonary thrombosis [Recovered/Resolved]
  - Eczema [Recovering/Resolving]
  - Swelling face [Recovered/Resolved]
  - Blood potassium decreased [Unknown]
  - Fall [Recovered/Resolved]

NARRATIVE: CASE EVENT DATE: 2016
